FAERS Safety Report 20337129 (Version 1)
Quarter: 2022Q1

REPORT INFORMATION
  Report Type: Spontaneous
  Country: None (occurrence: FR)
  Receive Date: 20220114
  Receipt Date: 20220114
  Transmission Date: 20220423
  Serious: Yes (Hospitalization)
  Sender: FDA-Public Use
  Company Number: FR-ALSI-2022000002

PATIENT
  Age: 27 Year
  Sex: Male

DRUGS (1)
  1. NITROUS OXIDE [Suspect]
     Active Substance: NITROUS OXIDE
     Indication: Product used for unknown indication
     Route: 055

REACTIONS (3)
  - Axonal neuropathy [Recovering/Resolving]
  - Motor dysfunction [Recovering/Resolving]
  - Paraesthesia [Recovering/Resolving]
